FAERS Safety Report 9657224 (Version 3)
Quarter: 2015Q4

REPORT INFORMATION
  Report Type: Report from Study
  Country: AU (occurrence: AU)
  Receive Date: 20131030
  Receipt Date: 20151117
  Transmission Date: 20160305
  Serious: No
  Sender: FDA-Public Use
  Company Number: AU-ABBVIE-13P-008-1163404-00

PATIENT
  Age: 49 Year
  Sex: Male
  Weight: 130 kg

DRUGS (5)
  1. HUMIRA [Suspect]
     Active Substance: ADALIMUMAB
     Indication: PSORIATIC ARTHROPATHY
     Route: 058
     Dates: start: 20130911, end: 20130925
  2. TELMISARTAN AND HYDROCHLOROTHIAZIDE [Concomitant]
     Active Substance: HYDROCHLOROTHIAZIDE\TELMISARTAN
     Indication: HYPERTENSION
     Dosage: 80/25MG
     Route: 048
  3. PANADOL [Concomitant]
     Active Substance: ACETAMINOPHEN
     Indication: PSORIATIC ARTHROPATHY
     Dosage: PRN (MAX TDS)
  4. AMLODIPINE W/PERINDOPRIL [Concomitant]
     Indication: HYPERTENSION
     Dosage: 5MG/5MG
     Route: 048
  5. SITAGLIPTIN METFORMIN [Concomitant]
     Active Substance: METFORMIN HYDROCHLORIDE\SITAGLIPTIN PHOSPHATE
     Indication: TYPE 2 DIABETES MELLITUS
     Dosage: 50MG/1G (BD)
     Route: 048

REACTIONS (4)
  - Oropharyngeal pain [Unknown]
  - Chest pain [Recovered/Resolved]
  - Blood pressure decreased [Recovered/Resolved]
  - Angioedema [Unknown]

NARRATIVE: CASE EVENT DATE: 20130929
